FAERS Safety Report 24760322 (Version 1)
Quarter: 2024Q4

REPORT INFORMATION
  Report Type: Spontaneous
  Country: CZ (occurrence: CZ)
  Receive Date: 20241220
  Receipt Date: 20241220
  Transmission Date: 20250115
  Serious: Yes (Hospitalization, Disabling, Other)
  Sender: FERRING
  Company Number: None

PATIENT

DRUGS (16)
  1. FIRMAGON [Suspect]
     Active Substance: DEGARELIX ACETATE
     Indication: Prostate cancer
     Dosage: 80 MG
     Route: 030
     Dates: start: 20241107, end: 20241107
  2. LENVATINIB [Suspect]
     Active Substance: LENVATINIB
     Indication: Prostate cancer
     Dosage: 10 MG
     Route: 048
     Dates: start: 20240701, end: 20240821
  3. LENVATINIB [Suspect]
     Active Substance: LENVATINIB
     Dosage: 10 MG
     Route: 048
     Dates: start: 20241010, end: 20241121
  4. KEYTRUDA [Suspect]
     Active Substance: PEMBROLIZUMAB
     Indication: Prostate cancer
     Dosage: 200 MG (3 DOSES IN TOTAL)
     Route: 042
     Dates: start: 20240701, end: 20240812
  5. ORGOVYX [Suspect]
     Active Substance: RELUGOLIX
     Indication: Prostate cancer
     Dosage: 120 MG, 1 TIME DAILY
     Route: 048
     Dates: start: 20240614, end: 20240822
  6. ORGOVYX [Suspect]
     Active Substance: RELUGOLIX
     Dosage: 120 MG, 1 TIME DAILY
     Route: 048
     Dates: start: 20240906, end: 20241030
  7. PREDNISONE [Concomitant]
     Active Substance: PREDNISONE
     Indication: Immune-mediated lung disease
     Dosage: 15 MG, 1 TIME DAILY
     Route: 065
  8. DENOSUMAB [Concomitant]
     Active Substance: DENOSUMAB
     Dosage: 1 DOSAGE FORM, MONTHLY
     Route: 065
  9. SPORANOX [Concomitant]
     Active Substance: ITRACONAZOLE
     Indication: Candida infection
     Dosage: 100 MG. DISCONTINUED DUE TO HEPATOPATHY
     Route: 048
     Dates: start: 20240902, end: 20240905
  10. SERETIDE [Concomitant]
     Active Substance: FLUTICASONE PROPIONATE\SALMETEROL XINAFOATE
     Dosage: 2 DOSAGE FORM, DAILY
  11. FENOTEROL HYDROBROMIDE\IPRATROPIUM BROMIDE [Concomitant]
     Active Substance: FENOTEROL HYDROBROMIDE\IPRATROPIUM BROMIDE
     Dosage: 2-3X DAILY
     Route: 065
  12. AMLODIPINE BESYLATE\PERINDOPRIL ARGININE [Concomitant]
     Active Substance: AMLODIPINE BESYLATE\PERINDOPRIL ARGININE
     Dosage: 1 DOSAGE FORM, DAILY
     Route: 065
  13. CALCIUM CARBONATE [Concomitant]
     Active Substance: CALCIUM CARBONATE
     Dosage: 1 DOSAGE FORM, DAILY
     Route: 065
  14. ALLOPURINOL [Concomitant]
     Active Substance: ALLOPURINOL
     Dosage: 100 MG, 1 TIME DAILY
     Route: 065
  15. DIETARY SUPPLEMENT\HERBALS\MILK THISTLE [Concomitant]
     Active Substance: MILK THISTLE
     Dosage: 150 MG, 3 TIMES DAILY
  16. THEOPHYLLINE [Concomitant]
     Active Substance: THEOPHYLLINE
     Dosage: 250 MG, 1 TIME DAILY
     Route: 065

REACTIONS (3)
  - Liver disorder [Unknown]
  - Hepatic enzyme increased [Unknown]
  - Incorrect route of product administration [Unknown]

NARRATIVE: CASE EVENT DATE: 20240822
